FAERS Safety Report 8062733-8 (Version None)
Quarter: 2012Q1

REPORT INFORMATION
  Report Type: 
  Country: None (occurrence: None)
  Receive Date: 20120118
  Receipt Date: 20120104
  Transmission Date: 20120608
  Serious: Yes (Hospitalization, Other)
  Sender: FDA-Public Use
  Company Number: 2012MA000235

PATIENT
  Sex: Female
  Weight: 89.3586 kg

DRUGS (23)
  1. ALBUTEROL [Concomitant]
  2. POTASSIUM CHLORIDE [Concomitant]
  3. COUMADIN [Concomitant]
  4. LASIX [Concomitant]
  5. LORAZEPAM [Concomitant]
  6. ZOLOFT [Concomitant]
  7. AMBIEN [Concomitant]
  8. ASPIRIN [Concomitant]
  9. IBUPROFEN [Concomitant]
  10. VICODIN [Concomitant]
  11. COLCHICINE [Concomitant]
  12. DIOVAN [Concomitant]
  13. ZOCOR [Concomitant]
  14. DIGOXIN [Suspect]
     Indication: PRODUCT USED FOR UNKNOWN INDICATION
     Dosage: 0.25 MG;QD;PO
     Route: 048
     Dates: start: 20040610, end: 20091002
  15. CARDIZEM [Concomitant]
  16. ELAVIL [Concomitant]
  17. MAGNESIUM SULFATE [Concomitant]
  18. NEXIUM [Concomitant]
  19. TYLENOL W/ CODEINE [Concomitant]
  20. LOVENOX [Concomitant]
  21. MORPHINE [Concomitant]
  22. XANAX [Concomitant]
  23. ACETAMINOPHEN [Concomitant]

REACTIONS (75)
  - DIZZINESS [None]
  - COUGH [None]
  - CORONARY ARTERY DISEASE [None]
  - APHAGIA [None]
  - TRANSIENT ISCHAEMIC ATTACK [None]
  - TOXICITY TO VARIOUS AGENTS [None]
  - ELECTROCARDIOGRAM QRS COMPLEX PROLONGED [None]
  - ELECTROCARDIOGRAM T WAVE INVERSION [None]
  - PULMONARY VALVE INCOMPETENCE [None]
  - BONE DENSITY DECREASED [None]
  - LUNG NEOPLASM [None]
  - CHEST PAIN [None]
  - DEPRESSION [None]
  - ASTHMA [None]
  - PYREXIA [None]
  - PAIN [None]
  - SLEEP APNOEA SYNDROME [None]
  - PALPITATIONS [None]
  - ECG SIGNS OF MYOCARDIAL ISCHAEMIA [None]
  - INSOMNIA [None]
  - DEHYDRATION [None]
  - ANAEMIA [None]
  - TACHYCARDIA [None]
  - ELECTROLYTE IMBALANCE [None]
  - ELECTROCARDIOGRAM ST SEGMENT DEPRESSION [None]
  - TRICUSPID VALVE INCOMPETENCE [None]
  - ARTHRALGIA [None]
  - DYSARTHRIA [None]
  - HYPOKALAEMIA [None]
  - HYPOMAGNESAEMIA [None]
  - BLOOD PRESSURE SYSTOLIC INCREASED [None]
  - MITRAL VALVE CALCIFICATION [None]
  - DIVERTICULUM [None]
  - GASTROINTESTINAL DISORDER [None]
  - WHEEZING [None]
  - ATRIAL FIBRILLATION [None]
  - DYSPNOEA EXERTIONAL [None]
  - OROPHARYNGEAL PAIN [None]
  - FATIGUE [None]
  - PAIN IN EXTREMITY [None]
  - LEFT ATRIAL DILATATION [None]
  - ELECTROCARDIOGRAM ST-T CHANGE [None]
  - ELECTROCARDIOGRAM T WAVE ABNORMAL [None]
  - INTERNATIONAL NORMALISED RATIO DECREASED [None]
  - BLOOD UREA INCREASED [None]
  - LOW DENSITY LIPOPROTEIN INCREASED [None]
  - BLOOD URIC ACID INCREASED [None]
  - ANISOCHROMIA [None]
  - PNEUMONIA [None]
  - WEIGHT INCREASED [None]
  - MALAISE [None]
  - CHEST DISCOMFORT [None]
  - SICK SINUS SYNDROME [None]
  - OEDEMA PERIPHERAL [None]
  - PULMONARY HYPERTENSION [None]
  - ANXIETY [None]
  - HYPERCHOLESTEROLAEMIA [None]
  - ABDOMINAL PAIN [None]
  - THROMBOCYTOPENIA [None]
  - HEART RATE IRREGULAR [None]
  - CARDIAC DISORDER [None]
  - RASH PRURITIC [None]
  - CONSTIPATION [None]
  - OVERWEIGHT [None]
  - ATELECTASIS [None]
  - ABDOMINAL DISTENSION [None]
  - POIKILOCYTOSIS [None]
  - BREATH SOUNDS ABNORMAL [None]
  - TREMOR [None]
  - SPEECH DISORDER [None]
  - MITRAL VALVE INCOMPETENCE [None]
  - ARTHROPOD BITE [None]
  - EJECTION FRACTION DECREASED [None]
  - ASTHENIA [None]
  - PROTEIN TOTAL INCREASED [None]
